FAERS Safety Report 19310059 (Version 1)
Quarter: 2021Q2

REPORT INFORMATION
  Report Type: Spontaneous
  Country: US (occurrence: US)
  Receive Date: 20210526
  Receipt Date: 20210526
  Transmission Date: 20210717
  Serious: No
  Sender: FDA-Public Use
  Company Number: US-GLAUKOS-AVE-2021-0055-AE

PATIENT
  Sex: Female

DRUGS (3)
  1. PHOTREXA [Suspect]
     Active Substance: RIBOFLAVIN 5^-PHOSPHATE SODIUM
     Indication: KERATOCONUS
     Route: 047
  2. KXL SYSTEM [Suspect]
     Active Substance: DEVICE
     Indication: KERATOCONUS
     Route: 047
  3. PHOTREXA VISCOUS [Suspect]
     Active Substance: RIBOFLAVIN 5^-PHOSPHATE SODIUM
     Indication: KERATOCONUS
     Route: 047

REACTIONS (4)
  - Ocular discomfort [Unknown]
  - Disease progression [Not Recovered/Not Resolved]
  - Eye pain [Unknown]
  - Lacrimation increased [Unknown]
